FAERS Safety Report 7681615-4 (Version None)
Quarter: 2011Q3

REPORT INFORMATION
  Report Type: 
  Country: None (occurrence: None)
  Receive Date: 20110812
  Receipt Date: 20110808
  Transmission Date: 20111222
  Serious: Yes (Other)
  Sender: FDA-Public Use
  Company Number: PHHY2011CA43575

PATIENT
  Sex: Female
  Weight: 195 kg

DRUGS (12)
  1. EXTAVIA [Suspect]
     Indication: RELAPSING-REMITTING MULTIPLE SCLEROSIS
     Dosage: 8 MIU, QOD
     Route: 058
     Dates: start: 20110502, end: 20110715
  2. VITAMIN D [Concomitant]
     Dosage: 2000 IU, PER DAY
  3. ASPIRIN [Concomitant]
     Dosage: UNK
  4. RABEPRAZOLE SODIUM [Concomitant]
     Dosage: 20 MG, UNK
  5. EXTAVIA [Suspect]
     Dosage: 4 MIU, EVERY OTHER DAY
     Route: 058
     Dates: start: 20110502
  6. ATENOLOL [Concomitant]
     Dosage: 50 MG, QD
  7. LYRICA [Concomitant]
     Dosage: 275 MG, QD
  8. MULTI-VITAMINS [Concomitant]
     Dosage: UNK
  9. ASPIRIN [Concomitant]
     Dosage: 81 MG, QD
  10. RABEPRAZOLE SODIUM [Concomitant]
     Dosage: UNK
  11. EXTAVIA [Suspect]
     Dosage: 0.062 MG, UNK
     Route: 062
  12. TRAZODONE HCL [Concomitant]
     Dosage: 50 MG, PRN

REACTIONS (7)
  - BURNING SENSATION [None]
  - INJECTION SITE URTICARIA [None]
  - CHILLS [None]
  - HEADACHE [None]
  - INJECTION SITE ERYTHEMA [None]
  - SKIN EXFOLIATION [None]
  - DRUG HYPERSENSITIVITY [None]
